FAERS Safety Report 5765903-4 (Version None)
Quarter: 2008Q2

REPORT INFORMATION
  Report Type: 
  Country: None (occurrence: None)
  Receive Date: 20080611
  Receipt Date: 20071226
  Transmission Date: 20081010
  Serious: No
  Sender: FDA-Public Use
  Company Number: US-BRISTOL-MYERS SQUIBB COMPANY-13674510

PATIENT
  Age: 53 Year
  Sex: Male
  Weight: 73 kg

DRUGS (3)
  1. SINEMET [Suspect]
     Indication: PARKINSON'S DISEASE
     Dosage: INCREASED FROM 25/100MG 2 TABLETS 4 TIMES DAY TO 5 TIMES/DAY 2 YEARS AGO
     Dates: start: 20010101
  2. REQUIP [Concomitant]
  3. COMTAN [Concomitant]

REACTIONS (5)
  - DRUG EFFECT PROLONGED [None]
  - DRUG INTERACTION [None]
  - FEELING ABNORMAL [None]
  - FEELING HOT [None]
  - TREMOR [None]
